FAERS Safety Report 6397439-4 (Version None)
Quarter: 2009Q4

REPORT INFORMATION
  Report Type: 
  Country: None (occurrence: None)
  Receive Date: 20091012
  Receipt Date: 20091005
  Transmission Date: 20100525
  Serious: Yes (Other)
  Sender: FDA-Public Use
  Company Number: PHEH2009US13032

PATIENT
  Sex: Female

DRUGS (2)
  1. DIOVAN [Suspect]
     Dosage: 160 MG, UNK
     Dates: start: 20090701, end: 20090910
  2. DIOVAN [Suspect]
     Dosage: UNK, UNK
     Dates: end: 20090910

REACTIONS (2)
  - DRUG INEFFECTIVE [None]
  - RENAL ARTERY STENOSIS [None]
